FAERS Safety Report 14832070 (Version 1)
Quarter: 2018Q2

REPORT INFORMATION
  Report Type: Spontaneous
  Country: ES (occurrence: ES)
  Receive Date: 20180501
  Receipt Date: 20180501
  Transmission Date: 20180711
  Serious: Yes (Hospitalization)
  Sender: FDA-Public Use
  Company Number: ES-ROCHE-2113568

PATIENT
  Age: 63 Year
  Sex: Male

DRUGS (3)
  1. ALPRAZOLAM. [Suspect]
     Active Substance: ALPRAZOLAM
     Indication: ANXIETY
     Dosage: 1-0-1-0
     Route: 048
     Dates: start: 20180405, end: 20180406
  2. XADAGO [Suspect]
     Active Substance: SAFINAMIDE MESYLATE
     Indication: PARKINSON^S DISEASE
     Dosage: 1-0-0
     Route: 048
     Dates: start: 20171120
  3. CLONAZEPAM. [Suspect]
     Active Substance: CLONAZEPAM
     Indication: BACK PAIN
     Dosage: 0-0-0-1
     Route: 048
     Dates: start: 20171120

REACTIONS (1)
  - Confusional state [Recovered/Resolved]

NARRATIVE: CASE EVENT DATE: 20180405
